FAERS Safety Report 7264771-1 (Version None)
Quarter: 2011Q1

REPORT INFORMATION
  Report Type: 
  Country: None (occurrence: None)
  Receive Date: 20110131
  Receipt Date: 20110124
  Transmission Date: 20110831
  Serious: Yes (Other)
  Sender: FDA-Public Use
  Company Number: FR-PFIZER INC-2010158871

PATIENT
  Age: 82 Year
  Sex: Male
  Weight: 70 kg

DRUGS (4)
  1. TAREG [Concomitant]
     Dosage: 80 UNK, 1X/DAY
     Route: 048
  2. KARDEGIC [Concomitant]
     Dosage: 75 UNK, 1X/DAY
     Route: 048
  3. TAHOR [Suspect]
     Indication: MYOCARDIAL INFARCTION
     Dosage: 40MG, UNK
     Route: 048
     Dates: start: 20101101, end: 20101110
  4. SECTRAL [Concomitant]
     Dosage: 100 MG, 1X/DAY
     Route: 048

REACTIONS (2)
  - HYPOGLYCAEMIA [None]
  - MALAISE [None]
